FAERS Safety Report 9370989 (Version 1)
Quarter: 2013Q2

REPORT INFORMATION
  Report Type: Spontaneous
  Country: NO (occurrence: NO)
  Receive Date: 20130627
  Receipt Date: 20130627
  Transmission Date: 20140414
  Serious: Yes (Hospitalization, Other)
  Sender: FDA-Public Use
  Company Number: NO-AMGEN-NORSP2013027678

PATIENT
  Sex: Male
  Weight: 73 kg

DRUGS (3)
  1. XGEVA [Suspect]
     Indication: PROSTATE CANCER METASTATIC
     Dosage: 120 MG, Q4WK
     Route: 058
     Dates: start: 20121107, end: 20121205
  2. ZYTIGA [Concomitant]
     Indication: PROSTATE CANCER METASTATIC
     Dosage: 100 MG, UNK
     Route: 048
     Dates: start: 20120910, end: 20130116
  3. PREDNISOLONE [Concomitant]
     Indication: PROSTATE CANCER METASTATIC
     Dosage: 5 MG, UNK

REACTIONS (5)
  - Metastases to bone [Unknown]
  - Hypophosphataemia [Recovering/Resolving]
  - Hypocalcaemia [Recovered/Resolved]
  - Pain in extremity [Recovering/Resolving]
  - General physical condition abnormal [Recovering/Resolving]
